FAERS Safety Report 9378886 (Version 1)
Quarter: 2013Q3

REPORT INFORMATION
  Report Type: Spontaneous
  Country: US (occurrence: US)
  Receive Date: 20130702
  Receipt Date: 20130702
  Transmission Date: 20140515
  Serious: No
  Sender: FDA-Public Use
  Company Number: US-PFIZER INC-2013194458

PATIENT
  Sex: Female

DRUGS (5)
  1. MORPHINE SULFATE [Suspect]
     Indication: PAIN
     Dosage: UNK
     Dates: start: 201306
  2. LYRICA [Suspect]
     Indication: PAIN IN EXTREMITY
     Dosage: UNK
     Dates: start: 201306
  3. LYRICA [Suspect]
     Indication: BURNING SENSATION
  4. PERCOCET [Suspect]
     Indication: PAIN
     Dosage: UNK
     Dates: start: 201306
  5. HYDROCODONE [Suspect]
     Indication: PAIN
     Dosage: 500 MG, AS NEEDED
     Dates: start: 201306

REACTIONS (3)
  - Drug ineffective [Unknown]
  - Insomnia [Unknown]
  - Pruritus [Unknown]
